FAERS Safety Report 7225777-1 (Version None)
Quarter: 2011Q1

REPORT INFORMATION
  Report Type: 
  Country: None (occurrence: None)
  Receive Date: 20110113
  Receipt Date: 20101222
  Transmission Date: 20110831
  Serious: Yes (Hospitalization)
  Sender: FDA-Public Use
  Company Number: CA-BAXTER-2010BH030762

PATIENT
  Sex: Male

DRUGS (2)
  1. CEFTAZIDIME [Suspect]
     Indication: PERITONITIS
     Dates: start: 20100101
  2. DIANEAL [Suspect]
     Indication: PERITONEAL DIALYSIS
     Route: 033

REACTIONS (4)
  - PNEUMONIA ASPIRATION [None]
  - PRODUCT CONTAINER ISSUE [None]
  - MYOCLONUS [None]
  - PERITONITIS [None]
